FAERS Safety Report 8508277-8 (Version None)
Quarter: 2012Q3

REPORT INFORMATION
  Report Type: 
  Country: None (occurrence: None)
  Receive Date: 20120713
  Receipt Date: 20110828
  Transmission Date: 20120928
  Serious: Yes (Other)
  Sender: FDA-Public Use
  Company Number: IL-BAYER-2012-069350

PATIENT
  Age: 33 Year
  Sex: Female

DRUGS (3)
  1. MIRENA [Suspect]
     Indication: CONTRACEPTION
     Dosage: 20 MCG/24HR, CONT
     Route: 015
     Dates: start: 20110619, end: 20110825
  2. MIRENA [Suspect]
     Dosage: 20 MCG/24HR, CONT
     Route: 015
     Dates: start: 20120311, end: 20120710
  3. GLUCOMIN [Concomitant]
     Indication: TYPE 2 DIABETES MELLITUS
     Dosage: 850 MG, BID

REACTIONS (6)
  - VAGINAL HAEMORRHAGE [None]
  - DEVICE EXPULSION [None]
  - MENORRHAGIA [None]
  - OVARIAN CYST [None]
  - OVARIAN TORSION [None]
  - ABDOMINAL PAIN LOWER [None]
